FAERS Safety Report 25171291 (Version 1)
Quarter: 2025Q2

REPORT INFORMATION
  Report Type: Spontaneous
  Country: VN (occurrence: VN)
  Receive Date: 20250408
  Receipt Date: 20250408
  Transmission Date: 20250716
  Serious: Yes (Other)
  Sender: ROCHE
  Company Number: VN-ROCHE-10000247786

PATIENT
  Age: 45 Year
  Sex: Male

DRUGS (1)
  1. ALECTINIB [Suspect]
     Active Substance: ALECTINIB
     Indication: Metastatic bronchial carcinoma
     Route: 065

REACTIONS (2)
  - Lung neoplasm [Unknown]
  - Blood creatinine increased [Unknown]
